FAERS Safety Report 6596945-7 (Version None)
Quarter: 2010Q1

REPORT INFORMATION
  Report Type: 
  Country: None (occurrence: None)
  Receive Date: 20100222
  Receipt Date: 20100222
  Transmission Date: 20100710
  Serious: Yes (Other)
  Sender: FDA-Public Use
  Company Number: None

PATIENT
  Sex: Female
  Weight: 111.1313 kg

DRUGS (2)
  1. ANDROGEL [Suspect]
     Indication: ACCIDENTAL EXPOSURE
     Dosage: 16 ACUTATIONS AM/ 12 EVENING TRANSDERMAL
     Route: 062
     Dates: start: 20060426, end: 20100210
  2. ANDROGEL [Suspect]
     Indication: BLOOD TESTOSTERONE DECREASED
     Dosage: 16 ACUTATIONS AM/ 12 EVENING TRANSDERMAL
     Route: 062
     Dates: start: 20060426, end: 20100210

REACTIONS (8)
  - ACCIDENTAL EXPOSURE [None]
  - ANAEMIA [None]
  - ENLARGED CLITORIS [None]
  - FATIGUE [None]
  - HAIR GROWTH ABNORMAL [None]
  - LIBIDO INCREASED [None]
  - MENORRHAGIA [None]
  - MENSTRUAL DISORDER [None]
